FAERS Safety Report 13412317 (Version 4)
Quarter: 2021Q4

REPORT INFORMATION
  Report Type: Spontaneous
  Country: US (occurrence: US)
  Receive Date: 20170406
  Receipt Date: 20211109
  Transmission Date: 20220303
  Serious: No
  Sender: FDA-Public Use
  Company Number: US-JNJFOC-20170308146

PATIENT
  Age: 2 Decade
  Sex: Male

DRUGS (10)
  1. RISPERDAL [Suspect]
     Active Substance: RISPERIDONE
     Indication: Autism spectrum disorder
     Route: 048
     Dates: start: 2006, end: 2008
  2. RISPERDAL [Suspect]
     Active Substance: RISPERIDONE
     Indication: Obsessive-compulsive disorder
     Route: 048
     Dates: start: 20081015, end: 20140114
  3. RISPERDAL [Suspect]
     Active Substance: RISPERIDONE
     Indication: Phobia
     Route: 048
     Dates: start: 201401, end: 20140129
  4. RISPERDAL [Suspect]
     Active Substance: RISPERIDONE
     Indication: Mental disorder
  5. RISPERIDONE [Suspect]
     Active Substance: RISPERIDONE
     Indication: Obsessive-compulsive disorder
     Dosage: IN VARYING DOSES OF 0.25, 0.5 MG, 1 MG AND 2 MG
     Route: 048
     Dates: start: 20081015, end: 20140116
  6. RISPERIDONE [Suspect]
     Active Substance: RISPERIDONE
     Indication: Autism spectrum disorder
  7. RISPERIDONE [Suspect]
     Active Substance: RISPERIDONE
     Indication: Phobia
  8. RISPERIDONE [Suspect]
     Active Substance: RISPERIDONE
     Indication: Product used for unknown indication
     Dosage: TAKE ONE AND HALF TABLET BY MOUTH EVERY DAY AT BED TIME
     Route: 048
  9. RISPERIDONE [Suspect]
     Active Substance: RISPERIDONE
     Dosage: TAKE ONE AND HALF TABLET BY MOUTH EVERY DAY AT BED TIME
     Route: 048
  10. RISPERIDONE [Suspect]
     Active Substance: RISPERIDONE
     Dosage: TAKE ONE TABLET BY MOUTH EVERY DAY AT BED TIME
     Route: 048

REACTIONS (3)
  - Emotional distress [Unknown]
  - Gynaecomastia [Unknown]
  - Tremor [Unknown]

NARRATIVE: CASE EVENT DATE: 20130101
